FAERS Safety Report 7755243-6 (Version None)
Quarter: 2011Q3

REPORT INFORMATION
  Report Type: 
  Country: None (occurrence: None)
  Receive Date: 20110913
  Receipt Date: 20110829
  Transmission Date: 20111222
  Serious: Yes (Other)
  Sender: FDA-Public Use
  Company Number: US-ACCORD-010536

PATIENT
  Age: 71 Year
  Sex: Male

DRUGS (2)
  1. MULTI-VITAMINS [Suspect]
     Indication: PRODUCT USED FOR UNKNOWN INDICATION
  2. DOCETAXEL [Suspect]
     Indication: PROSTATE CANCER
     Dosage: 30.00-MG/M2

REACTIONS (3)
  - DRUG INTERACTION [None]
  - DRUG INEFFECTIVE [None]
  - DRUG RESISTANCE [None]
